FAERS Safety Report 4902621-6 (Version None)
Quarter: 2006Q1

REPORT INFORMATION
  Report Type: 
  Country: None (occurrence: None)
  Receive Date: 20060207
  Receipt Date: 20060117
  Transmission Date: 20060701
  Serious: Yes (Other)
  Sender: FDA-Public Use
  Company Number: PHEH2006US01227

PATIENT
  Age: 58 Year
  Sex: Female

DRUGS (3)
  1. FORADIL [Suspect]
     Indication: BRONCHIECTASIS
     Dosage: 12MCG, QD
     Dates: start: 20051115
  2. CLEANERS [Suspect]
  3. WELLBUTRIN [Concomitant]
     Indication: DEPRESSION
     Dates: start: 20030101

REACTIONS (7)
  - ASTHENIA [None]
  - ASTHMA [None]
  - CONFUSIONAL STATE [None]
  - DYSPNOEA [None]
  - ENERGY INCREASED [None]
  - IRRITABLE BOWEL SYNDROME [None]
  - THERAPEUTIC RESPONSE UNEXPECTED [None]
